FAERS Safety Report 5867483-1 (Version None)
Quarter: 2008Q3

REPORT INFORMATION
  Report Type: 
  Country: None (occurrence: None)
  Receive Date: 20080902
  Receipt Date: 20080825
  Transmission Date: 20090109
  Serious: Yes (Other)
  Sender: FDA-Public Use
  Company Number: BR-ASTRAZENECA-2008UW17682

PATIENT
  Age: 37 Year
  Sex: Female
  Weight: 80 kg

DRUGS (4)
  1. ATACAND HCT [Suspect]
     Indication: HYPERTENSION
     Dosage: 16+12.5 MG EVERY DAY
     Route: 048
     Dates: start: 20080819, end: 20080801
  2. ATENOLOL [Concomitant]
     Indication: HYPERTENSION
     Dates: end: 20080818
  3. HIDROCLORTIAZIDA [Concomitant]
     Indication: HYPERTENSION
     Dates: end: 20080818
  4. NIFEDIPINO [Concomitant]
     Indication: HYPERTENSION
     Dates: end: 20080818

REACTIONS (1)
  - BLOOD PRESSURE INCREASED [None]
